FAERS Safety Report 4780059-2 (Version None)
Quarter: 2005Q3

REPORT INFORMATION
  Report Type: 
  Country: None (occurrence: None)
  Receive Date: 20050914
  Receipt Date: 20050706
  Transmission Date: 20060218
  Serious: Yes (Other)
  Sender: FDA-Public Use
  Company Number: 163-20785-05070132

PATIENT

DRUGS (3)
  1. THALOMID [Suspect]
     Indication: MULTIPLE MYELOMA
     Dosage: INDUCTION PHASE: 200-400MG/D PO STARTING ON DAY 4/MAINTENANCE PHASE: 200-400MG/D PO
     Route: 048
     Dates: start: 20030428, end: 20050101
  2. GENASENSE [Suspect]
     Indication: MULTIPLE MYELOMA
     Dosage: INDUCTION PHASE: 7 MG/KG/D CIV ON DAYS 1-7, 22-28, AND 43-49/MAINTENANCE PHASE: 5-7MG/KG/D CIV ON DA
     Route: 041
     Dates: start: 20030425, end: 20050101
  3. DEXAMETHASONE [Suspect]
     Indication: MULTIPLE MYELOMA
     Dosage: INDUCTION PHASE: 40MG/D PO ON DAYS 4-7, 25-28, AND 46-49/MAINTENANCE PHASE: 20MG/D PO ON DAYS 4-7 EV
     Route: 048
     Dates: start: 20030428, end: 20050101

REACTIONS (6)
  - HYPERGLYCAEMIA [None]
  - METASTASES TO SKIN [None]
  - NEUTROPHIL COUNT DECREASED [None]
  - PAIN [None]
  - PLATELET COUNT DECREASED [None]
  - WHITE BLOOD CELL COUNT DECREASED [None]
